FAERS Safety Report 5248018-3 (Version None)
Quarter: 2007Q1

REPORT INFORMATION
  Report Type: 
  Country: None (occurrence: None)
  Receive Date: 20070222
  Receipt Date: 20070209
  Transmission Date: 20070707
  Serious: Yes (Hospitalization)
  Sender: FDA-Public Use
  Company Number: 2007-153592-NL

PATIENT
  Sex: Female

DRUGS (1)
  1. NUVARING [Suspect]
     Dosage: DF VAGINAL
     Route: 067

REACTIONS (5)
  - ANAPHYLACTIC REACTION [None]
  - DIARRHOEA [None]
  - PRURITUS [None]
  - RESPIRATORY DISTRESS [None]
  - URTICARIA [None]
